FAERS Safety Report 13698872 (Version 2)
Quarter: 2017Q3

REPORT INFORMATION
  Report Type: Report from Study
  Country: US (occurrence: US)
  Receive Date: 20170628
  Receipt Date: 20170710
  Transmission Date: 20171127
  Serious: Yes (Other)
  Sender: FDA-Public Use
  Company Number: US-BAYER-2017-122174

PATIENT
  Age: 4 Year
  Sex: Male

DRUGS (3)
  1. ASPIRIN. [Interacting]
     Active Substance: ASPIRIN
     Indication: CORONARY ARTERY ANEURYSM
  2. WARFARIN [Interacting]
     Active Substance: WARFARIN
     Dosage: UNK
  3. ASPIRIN. [Suspect]
     Active Substance: ASPIRIN
     Indication: KAWASAKI^S DISEASE
     Dosage: UNK

REACTIONS (6)
  - Labelled drug-drug interaction medication error [None]
  - Product use in unapproved indication [None]
  - Muscle haemorrhage [None]
  - Off label use [None]
  - Drug administered to patient of inappropriate age [None]
  - International normalised ratio decreased [None]
